FAERS Safety Report 9122366 (Version 1)
Quarter: 2013Q1

REPORT INFORMATION
  Report Type: Report from Study
  Country: CA (occurrence: CA)
  Receive Date: 20130114
  Receipt Date: 20130114
  Transmission Date: 20140127
  Serious: Yes (Hospitalization)
  Sender: FDA-Public Use
  Company Number: CA-JNJFOC-20130102834

PATIENT
  Age: 68 Year
  Sex: Male
  Weight: 63 kg

DRUGS (11)
  1. REMICADE [Suspect]
     Indication: COLITIS ULCERATIVE
     Route: 042
     Dates: start: 201212
  2. FERROUS  GLUCONATE [Concomitant]
     Route: 065
  3. PANTOPRAZOLE [Concomitant]
     Route: 065
  4. RAMIPRIL [Concomitant]
     Route: 065
  5. 5 AMINOSALICYLIC ACID [Concomitant]
     Route: 065
  6. PREDNISONE [Concomitant]
     Route: 065
  7. ATORVASTATIN CALCIUM [Concomitant]
     Route: 065
  8. AZOTHIOPRINE [Concomitant]
     Route: 065
  9. TAMSULOSIN [Concomitant]
     Route: 065
  10. FINASTERIDE [Concomitant]
     Route: 065
  11. METOPROLOL [Concomitant]
     Route: 065

REACTIONS (6)
  - Hospitalisation [Unknown]
  - Gait disturbance [Unknown]
  - Haematochezia [Unknown]
  - Mucosal haemorrhage [Unknown]
  - Pallor [Unknown]
  - Asthenia [Unknown]
